FAERS Safety Report 20436270 (Version 2)
Quarter: 2022Q1

REPORT INFORMATION
  Report Type: Spontaneous
  Country: AU (occurrence: AU)
  Receive Date: 20220207
  Receipt Date: 20220218
  Transmission Date: 20220423
  Serious: Yes (Other)
  Sender: FDA-Public Use
  Company Number: AU-ADVANZ PHARMA-202201000580

PATIENT

DRUGS (1)
  1. HYDROXYCHLOROQUINE [Suspect]
     Active Substance: HYDROXYCHLOROQUINE
     Indication: Polymorphic light eruption
     Dosage: UNK, PRN (PLAQUENIL)
     Route: 065

REACTIONS (2)
  - Rectal haemorrhage [Unknown]
  - Product use in unapproved indication [Unknown]
